FAERS Safety Report 4786832-9 (Version None)
Quarter: 2005Q4

REPORT INFORMATION
  Report Type: 
  Country: None (occurrence: None)
  Receive Date: 20051004
  Receipt Date: 20050302
  Transmission Date: 20060501
  Serious: Yes (Life-Threatening)
  Sender: FDA-Public Use
  Company Number: 2005GB00461

PATIENT
  Age: 26713 Day
  Sex: Female

DRUGS (11)
  1. ZD1839 [Suspect]
     Indication: BREAST CANCER
     Route: 048
     Dates: start: 20041020, end: 20050202
  2. ARIMIDEX [Suspect]
     Indication: BREAST CANCER
     Route: 048
     Dates: start: 20041020, end: 20050202
  3. BENDROFLUAZIDE [Concomitant]
     Indication: HYPERTENSION
     Route: 048
     Dates: start: 19950101
  4. THYROXINE [Concomitant]
     Indication: HYPOTHYROIDISM
     Route: 048
     Dates: start: 19950101
  5. DOVOBET CREAM [Concomitant]
     Indication: PSORIASIS
     Route: 061
     Dates: start: 19950101
  6. BECLOMETHASONE NASAL SPRAY [Concomitant]
     Indication: ASTHMA
     Route: 045
     Dates: start: 19950101
  7. BECONASE [Concomitant]
     Indication: ASTHMA
     Route: 055
     Dates: start: 19950101
  8. BECOTIDE INHALER [Concomitant]
     Indication: ASTHMA
     Route: 055
     Dates: start: 19950101
  9. EVOHALER INHALER [Concomitant]
     Indication: ASTHMA
     Route: 055
     Dates: start: 19950101
  10. VENTOLIN [Concomitant]
     Indication: ASTHMA
     Route: 055
     Dates: start: 19950101
  11. GLICLAZIDE [Concomitant]
     Indication: DIABETES MELLITUS
     Route: 048
     Dates: start: 20041208

REACTIONS (2)
  - HYPERTENSIVE CRISIS [None]
  - POST PROCEDURAL COMPLICATION [None]
